FAERS Safety Report 5005244-6 (Version None)
Quarter: 2006Q2

REPORT INFORMATION
  Report Type: 
  Country: None (occurrence: None)
  Receive Date: 20060518
  Receipt Date: 20060508
  Transmission Date: 20061013
  Serious: Yes (Other)
  Sender: FDA-Public Use
  Company Number: SG-AMGEN-US178915

PATIENT
  Sex: Male

DRUGS (1)
  1. NEUPOGEN [Suspect]
     Indication: NEUTROPENIA
     Route: 058
     Dates: start: 20060427, end: 20060428

REACTIONS (3)
  - CHILLS [None]
  - MYALGIA [None]
  - PYREXIA [None]
